FAERS Safety Report 5299577-6 (Version None)
Quarter: 2007Q2

REPORT INFORMATION
  Report Type: 
  Country: None (occurrence: None)
  Receive Date: 20070417
  Receipt Date: 20070404
  Transmission Date: 20071010
  Serious: Yes (Hospitalization)
  Sender: FDA-Public Use
  Company Number: PHEH2007US04139

PATIENT
  Sex: Female

DRUGS (1)
  1. ZELNORM [Suspect]

REACTIONS (4)
  - CHEST DISCOMFORT [None]
  - ECHOCARDIOGRAM ABNORMAL [None]
  - HEART RATE IRREGULAR [None]
  - PALPITATIONS [None]
